FAERS Safety Report 4899365-6 (Version None)
Quarter: 2006Q1

REPORT INFORMATION
  Report Type: 
  Country: None (occurrence: None)
  Receive Date: 20060131
  Receipt Date: 20060118
  Transmission Date: 20060701
  Serious: Yes (Death)
  Sender: FDA-Public Use
  Company Number: 2006012379

PATIENT

DRUGS (5)
  1. VORICONAZOLE (VORICONAZOLE) [Suspect]
     Indication: FUNGAL INFECTION
  2. FLUCLOXACILLIN (FLUOCLOXACILLIN) [Concomitant]
  3. FOSFOMYCIN (FOSFOMYCIN) [Concomitant]
  4. GENTAMICIN SULFATE [Concomitant]
  5. MEROPENEM (MEROPENEM) [Concomitant]

REACTIONS (9)
  - AORTIC VALVE INCOMPETENCE [None]
  - BRAIN ABSCESS [None]
  - CONDITION AGGRAVATED [None]
  - DISSEMINATED INTRAVASCULAR COAGULATION [None]
  - HAEMODIALYSIS [None]
  - METASTASIS [None]
  - MULTI-ORGAN FAILURE [None]
  - RENAL FAILURE [None]
  - RESPIRATORY FAILURE [None]
